FAERS Safety Report 7447504-5 (Version None)
Quarter: 2011Q2

REPORT INFORMATION
  Report Type: 
  Country: None (occurrence: None)
  Receive Date: 20110429
  Receipt Date: 20110204
  Transmission Date: 20111010
  Serious: No
  Sender: FDA-Public Use
  Company Number: US-ASTRAZENECA-2011SE06543

PATIENT
  Sex: Female
  Weight: 45.4 kg

DRUGS (1)
  1. NEXIUM [Suspect]
     Indication: GASTROOESOPHAGEAL REFLUX DISEASE
     Route: 048
     Dates: start: 20100701, end: 20110125

REACTIONS (4)
  - FEELING JITTERY [None]
  - ANXIETY [None]
  - DRUG DOSE OMISSION [None]
  - INSOMNIA [None]
